FAERS Safety Report 9722058 (Version 1)
Quarter: 2013Q4

REPORT INFORMATION
  Report Type: Spontaneous
  Country: US (occurrence: US)
  Receive Date: 20131202
  Receipt Date: 20131202
  Transmission Date: 20140711
  Serious: No
  Sender: FDA-Public Use
  Company Number: US-BIOGENIDEC-2013BI086437

PATIENT
  Sex: Female
  Weight: 52 kg

DRUGS (6)
  1. TECFIDERA [Suspect]
     Indication: MULTIPLE SCLEROSIS
     Route: 048
     Dates: start: 20130817
  2. BACLOFEN [Concomitant]
  3. MAGNESIUM [Concomitant]
  4. VITAMIN D [Concomitant]
  5. COQ10 [Concomitant]
  6. ADVIL [Concomitant]

REACTIONS (4)
  - Headache [Unknown]
  - Faeces soft [Unknown]
  - Flushing [Not Recovered/Not Resolved]
  - Erythema [Unknown]
